FAERS Safety Report 9983956 (Version 1)
Quarter: 2014Q1

REPORT INFORMATION
  Report Type: Report from Study
  Country: US (occurrence: US)
  Receive Date: 20140307
  Receipt Date: 20140307
  Transmission Date: 20141002
  Serious: No
  Sender: FDA-Public Use
  Company Number: US-ABBVIE-13P-163-1184305-00

PATIENT
  Age: 57 Year
  Sex: Female

DRUGS (8)
  1. HUMIRA [Suspect]
     Indication: CROHN^S DISEASE
     Dates: start: 20131119
  2. EFFEXOR [Concomitant]
     Indication: DEPRESSION
  3. WELLBUTRIN [Concomitant]
     Indication: DEPRESSION
  4. PROPRANOLOL [Concomitant]
     Indication: DEPRESSION
  5. ABILIFY [Concomitant]
     Indication: DEPRESSION
  6. LEVOTHYROXINE [Concomitant]
     Indication: HYPOTHYROIDISM
  7. XANAX [Concomitant]
     Indication: ANXIETY
  8. MIRTAZAPINE [Concomitant]
     Indication: INSOMNIA

REACTIONS (6)
  - Bowel movement irregularity [Unknown]
  - Migraine [Unknown]
  - Abdominal pain [Unknown]
  - Back pain [Unknown]
  - Drug ineffective [Not Recovered/Not Resolved]
  - Diarrhoea [Not Recovered/Not Resolved]
